FAERS Safety Report 10024287 (Version 1)
Quarter: 2014Q1

REPORT INFORMATION
  Report Type: Spontaneous
  Country: US (occurrence: US)
  Receive Date: 20140320
  Receipt Date: 20140320
  Transmission Date: 20141002
  Serious: No
  Sender: FDA-Public Use
  Company Number: US-009507513-1403USA000032

PATIENT
  Age: 51 Year
  Sex: Female

DRUGS (3)
  1. CORICIDIN HBP COLD AND FLU [Suspect]
     Indication: ILL-DEFINED DISORDER
     Dosage: UNK, UNKNOWN
     Route: 048
  2. CORICIDIN HBP COLD AND FLU [Suspect]
     Indication: NASOPHARYNGITIS
  3. CORICIDIN HBP COLD AND FLU [Suspect]
     Indication: MALAISE

REACTIONS (1)
  - Drug ineffective [Unknown]
